FAERS Safety Report 24747735 (Version 2)
Quarter: 2025Q3

REPORT INFORMATION
  Report Type: Report from Study
  Country: US (occurrence: US)
  Receive Date: 20241218
  Receipt Date: 20250809
  Transmission Date: 20251020
  Serious: Yes (Other)
  Sender: ALEXION PHARMACEUTICALS
  Company Number: US-AstraZeneca-CH-00766737A

PATIENT
  Sex: Female

DRUGS (1)
  1. OLAPARIB [Suspect]
     Active Substance: OLAPARIB
     Dosage: 200 MILLIGRAM, BID

REACTIONS (5)
  - Neuropathy peripheral [Unknown]
  - Arthralgia [Unknown]
  - Fatigue [Unknown]
  - Abdominal pain upper [Unknown]
  - Red blood cell count decreased [Unknown]
